FAERS Safety Report 25400575 (Version 1)
Quarter: 2025Q2

REPORT INFORMATION
  Report Type: Spontaneous
  Country: US (occurrence: US)
  Receive Date: 20250605
  Receipt Date: 20250605
  Transmission Date: 20250717
  Serious: Yes (Death)
  Sender: LABORATOIRES SERB
  Company Number: US-SERB S.A.S.-2178093

PATIENT
  Age: 24 Year
  Sex: Male

DRUGS (2)
  1. CYANOKIT [Suspect]
     Active Substance: HYDROXOCOBALAMIN
     Indication: Poisoning
  2. VASOPRESSIN [Concomitant]
     Active Substance: VASOPRESSIN

REACTIONS (2)
  - Death [Fatal]
  - Device interaction [Unknown]
